FAERS Safety Report 8164330-2 (Version None)
Quarter: 2012Q1

REPORT INFORMATION
  Report Type: 
  Country: None (occurrence: None)
  Receive Date: 20120224
  Receipt Date: 20120217
  Transmission Date: 20120608
  Serious: Yes (Other)
  Sender: FDA-Public Use
  Company Number: BR-ABBOTT-12P-020-0903134-00

PATIENT
  Sex: Female
  Weight: 61 kg

DRUGS (6)
  1. CALCORT [Suspect]
     Indication: PRODUCT USED FOR UNKNOWN INDICATION
  2. CRESTOR [Concomitant]
     Indication: BLOOD CHOLESTEROL
     Dates: start: 20070701
  3. METHOTREXATE [Concomitant]
     Indication: ARTHRITIS
     Dosage: 1 TABLET PER WEEK
  4. OLMESARTAN MEDOXOMIL [Concomitant]
     Indication: HYPERTENSION
     Dosage: HALF TABLET A DAY
     Route: 048
     Dates: start: 20060101
  5. HUMIRA [Suspect]
     Indication: RHEUMATOID ARTHRITIS
     Route: 058
     Dates: start: 20071023
  6. HUMIRA [Suspect]

REACTIONS (12)
  - DRUG HYPERSENSITIVITY [None]
  - TENDON DISORDER [None]
  - PAIN [None]
  - IMMUNODEFICIENCY [None]
  - HERPES ZOSTER [None]
  - ARTHRALGIA [None]
  - INFLUENZA [None]
  - TONGUE PRURITUS [None]
  - PAIN IN EXTREMITY [None]
  - ARTHRITIS [None]
  - UNEVALUABLE EVENT [None]
  - MOBILITY DECREASED [None]
